FAERS Safety Report 25222219 (Version 1)
Quarter: 2025Q2

REPORT INFORMATION
  Report Type: Spontaneous
  Country: BR (occurrence: BR)
  Receive Date: 20250421
  Receipt Date: 20250421
  Transmission Date: 20250716
  Serious: Yes (Life-Threatening, Other)
  Sender: SANDOZ
  Company Number: BR-002147023-NVSC2020BR190158

PATIENT
  Sex: Female

DRUGS (4)
  1. AZOPT [Suspect]
     Active Substance: BRINZOLAMIDE
     Indication: Product used for unknown indication
     Route: 065
  2. TRAVATAN [Suspect]
     Active Substance: TRAVOPROST
     Indication: Product used for unknown indication
     Route: 065
  3. JANUMET [Concomitant]
     Active Substance: METFORMIN HYDROCHLORIDE\SITAGLIPTIN PHOSPHATE
     Indication: Product used for unknown indication
     Route: 065
  4. Metformin;Rosiglitazone [Concomitant]
     Indication: Product used for unknown indication
     Route: 065
     Dates: start: 2010, end: 2015

REACTIONS (11)
  - Near death experience [Recovered/Resolved]
  - Visual impairment [Unknown]
  - Diabetes mellitus [Unknown]
  - Optic nerve disorder [Unknown]
  - Optic nerve injury [Unknown]
  - Lung neoplasm malignant [Unknown]
  - Pulmonary oedema [Unknown]
  - Skin cancer [Unknown]
  - Metastases to lung [Unknown]
  - Sinusitis [Unknown]
  - Weight decreased [Unknown]
